FAERS Safety Report 23333218 (Version 2)
Quarter: 2024Q2

REPORT INFORMATION
  Report Type: Report from Study
  Country: US (occurrence: US)
  Receive Date: 20231222
  Receipt Date: 20240401
  Transmission Date: 20240716
  Serious: Yes (Hospitalization, Other)
  Sender: FDA-Public Use
  Company Number: US-ABBVIE-5546928

PATIENT
  Sex: Female

DRUGS (1)
  1. RINVOQ [Suspect]
     Active Substance: UPADACITINIB
     Indication: Dermatitis atopic
     Route: 048
     Dates: start: 20230804

REACTIONS (6)
  - Gastric perforation [Unknown]
  - Blood iron decreased [Recovered/Resolved]
  - Hospitalisation [Unknown]
  - Gastric haemorrhage [Unknown]
  - Dermatitis atopic [Not Recovered/Not Resolved]
  - Iron deficiency [Recovering/Resolving]

NARRATIVE: CASE EVENT DATE: 20230101
